FAERS Safety Report 5170535-5 (Version None)
Quarter: 2006Q4

REPORT INFORMATION
  Report Type: 
  Country: None (occurrence: None)
  Receive Date: 20061204
  Receipt Date: 20061123
  Transmission Date: 20070319
  Serious: Yes (Hospitalization)
  Sender: FDA-Public Use
  Company Number: 02100-JPN-06-0556

PATIENT
  Age: 69 Year
  Sex: Male

DRUGS (1)
  1. CILOSTAZOL [Suspect]
     Route: 048

REACTIONS (1)
  - HAEMORRHAGIC STROKE [None]
